FAERS Safety Report 4727133-4 (Version None)
Quarter: 2005Q3

REPORT INFORMATION
  Report Type: 
  Country: None (occurrence: None)
  Receive Date: 20050728
  Receipt Date: 20050411
  Transmission Date: 20060218
  Serious: Yes (Hospitalization, Disabling)
  Sender: FDA-Public Use
  Company Number: FR-SOLVAY-00205002394

PATIENT
  Age: 54 Year
  Sex: Female

DRUGS (2)
  1. UTROGESTAN [Suspect]
     Indication: ILL-DEFINED DISORDER
     Dosage: DAILY DOSE: 1 DOSAGE FORM
     Route: 048
     Dates: start: 20050305, end: 20050308
  2. ESTREVA [Suspect]
     Indication: ILL-DEFINED DISORDER
     Dosage: DAILY DOSE: 1 DOSAGE FORM
     Route: 048
     Dates: start: 20050305, end: 20050308

REACTIONS (11)
  - ALANINE AMINOTRANSFERASE INCREASED [None]
  - ANXIETY [None]
  - CHEST PAIN [None]
  - COLITIS ISCHAEMIC [None]
  - ELECTROCARDIOGRAM ABNORMAL [None]
  - GAMMA-GLUTAMYLTRANSFERASE INCREASED [None]
  - INTESTINAL SPASM [None]
  - LIVER DISORDER [None]
  - RECTAL HAEMORRHAGE [None]
  - RESPIRATORY DISORDER [None]
  - VOMITING [None]
